FAERS Safety Report 6062153-1 (Version None)
Quarter: 2009Q1

REPORT INFORMATION
  Report Type: 
  Country: None (occurrence: None)
  Receive Date: 20090129
  Receipt Date: 20090129
  Transmission Date: 20090719
  Serious: Yes (Other)
  Sender: FDA-Public Use
  Company Number: None

PATIENT
  Sex: Female
  Weight: 61.2356 kg

DRUGS (1)
  1. OXYBUTYNIN 5 MG NOT SHOWN [Suspect]
     Indication: HYPERTONIC BLADDER
     Dosage: ONE TABLET EVERY 12 HOURS PO
     Route: 048
     Dates: start: 20090111, end: 20090128

REACTIONS (2)
  - DRUG INEFFECTIVE [None]
  - PRODUCT QUALITY ISSUE [None]
